FAERS Safety Report 18388551 (Version 1)
Quarter: 2020Q4

REPORT INFORMATION
  Report Type: Spontaneous
  Country: US (occurrence: US)
  Receive Date: 20201015
  Receipt Date: 20201015
  Transmission Date: 20210114
  Serious: Yes (Hospitalization)
  Sender: FDA-Public Use
  Company Number: US-SAGENT PHARMACEUTICALS-2020SAG002188

PATIENT

DRUGS (3)
  1. ESMOLOL HYDROCHLORIDE. [Suspect]
     Active Substance: ESMOLOL HYDROCHLORIDE
     Indication: TACHYCARDIA
     Dosage: 15 MG, UNK
     Route: 042
  2. DOBUTAMINE [Interacting]
     Active Substance: DOBUTAMINE HYDROCHLORIDE
     Indication: STRESS ECHOCARDIOGRAM
     Dosage: 10 MCG/KG/MIN INCREASING TO 50 MCG/KG/MIN
     Route: 042
  3. ATROPINE. [Concomitant]
     Active Substance: ATROPINE
     Indication: STRESS ECHOCARDIOGRAM
     Dosage: 0.75 MG, UNK
     Route: 042

REACTIONS (3)
  - Acute myocardial infarction [Recovering/Resolving]
  - Drug interaction [Recovering/Resolving]
  - Arteriospasm coronary [Recovering/Resolving]
